FAERS Safety Report 13647602 (Version 5)
Quarter: 2018Q1

REPORT INFORMATION
  Report Type: Spontaneous
  Country: JP (occurrence: JP)
  Receive Date: 20170613
  Receipt Date: 20180307
  Transmission Date: 20180508
  Serious: Yes (Other)
  Sender: FDA-Public Use
  Company Number: JP-GLAXOSMITHKLINE-JP2017JPN079694

PATIENT
  Age: 28 Year
  Sex: Female

DRUGS (5)
  1. CERVARIX [Concomitant]
     Active Substance: HUMAN PAPILLOMAVIRUS TYPE 16 L1 CAPSID PROTEIN RESIDUES 2-471 ANTIGEN\HUMAN PAPILLOMAVIRUS TYPE 18 L1 CAPSID PROTEIN RESIDUES 2-472 ANTIGEN
     Indication: PROPHYLAXIS
     Route: 030
     Dates: start: 20100612, end: 20100612
  2. CERVARIX [Suspect]
     Active Substance: HUMAN PAPILLOMAVIRUS TYPE 16 L1 CAPSID PROTEIN RESIDUES 2-471 ANTIGEN\HUMAN PAPILLOMAVIRUS TYPE 18 L1 CAPSID PROTEIN RESIDUES 2-472 ANTIGEN
     Indication: PROPHYLAXIS
     Route: 030
     Dates: start: 20101218, end: 20101218
  3. CERVARIX [Concomitant]
     Active Substance: HUMAN PAPILLOMAVIRUS TYPE 16 L1 CAPSID PROTEIN RESIDUES 2-471 ANTIGEN\HUMAN PAPILLOMAVIRUS TYPE 18 L1 CAPSID PROTEIN RESIDUES 2-472 ANTIGEN
     Route: 030
     Dates: start: 20100710, end: 20100710
  4. LAMICTAL [Suspect]
     Active Substance: LAMOTRIGINE
     Indication: DEPRESSION
     Dosage: UNK
     Route: 048
  5. ETIZOLAM [Concomitant]
     Active Substance: ETIZOLAM
     Dosage: UNK

REACTIONS (8)
  - Lymphocyte morphology abnormal [Recovered/Resolved]
  - Parapsoriasis [Recovered/Resolved]
  - Mycosis fungoides [Recovered/Resolved]
  - Eczema [Not Recovered/Not Resolved]
  - Generalised erythema [Not Recovered/Not Resolved]
  - Drug eruption [Recovered/Resolved]
  - Dry skin [Recovered/Resolved]
  - Pruritus [Not Recovered/Not Resolved]

NARRATIVE: CASE EVENT DATE: 201511
